FAERS Safety Report 10220046 (Version 1)
Quarter: 2014Q1

REPORT INFORMATION
  Report Type: Spontaneous
  Country: US (occurrence: None)
  Receive Date: 20140306
  Receipt Date: 20140306
  Transmission Date: 20141002
  Serious: Yes (Other)
  Sender: FDA-Public Use
  Company Number: 163-21880-13022809

PATIENT
  Age: 77 Year
  Sex: Female
  Weight: 49.9 kg

DRUGS (10)
  1. REVLIMID (LENALIDOMIDE) (25 MILLIGRAM, CAPSULES) [Suspect]
     Indication: PLASMA CELL MYELOMA
     Dosage: 25 MG, 21IN 28 D, PO
     Route: 048
     Dates: start: 20130213
  2. DEXAMETHASONE (DEXAMETHASONE) (UNKNOWN) [Suspect]
     Indication: PRODUCT USED FOR UNKNOWN INDICATION
  3. ACIDOPHILUS (LACTOBACILLUS ACIDOPHILUS) (CAPSULES) [Concomitant]
  4. ALENDRONATE SODIUM (ALENDRONATE SODIUM) (UNKNOWN) [Concomitant]
  5. CO Q-10 (UBIDECARENONE) (CAPSULES) [Concomitant]
  6. COMBIVENT (COMBIVENT) (UNKNOWN) [Concomitant]
  7. PROAIR HFA (SALBUTAMOL SULFATE) (UNKNOWN) [Concomitant]
  8. THEOPHYLLINE (THEOPHYLLINE) (UNKNOWN) [Concomitant]
  9. ZAFIRLUKAST (ZAFIRLUKAST) (TABLETS) [Concomitant]
  10. ZOLPIDEM TARTRATE (ZOLPIDEM TARTRATE) (UNKNOWN) [Concomitant]

REACTIONS (4)
  - Constipation [None]
  - Flatulence [None]
  - Abdominal pain [None]
  - Malaise [None]
